FAERS Safety Report 7047294-4 (Version None)
Quarter: 2010Q4

REPORT INFORMATION
  Report Type: 
  Country: None (occurrence: None)
  Receive Date: 20101015
  Receipt Date: 20101001
  Transmission Date: 20110411
  Serious: Yes (Death)
  Sender: FDA-Public Use
  Company Number: PHHY2010JP47575

PATIENT
  Sex: Female

DRUGS (4)
  1. DIOVAN [Suspect]
     Indication: HYPERTENSION
     Dosage: 80 MG, QD
     Route: 048
     Dates: start: 20080405
  2. PARKISTON [Concomitant]
     Dosage: 200 MG
     Route: 048
     Dates: start: 20090403, end: 20090424
  3. UBRETID [Concomitant]
     Dosage: 10 MG
     Dates: start: 20090403, end: 20090424
  4. NITOROL [Concomitant]
     Dosage: 40 MG
     Route: 048
     Dates: start: 20080405, end: 20080723

REACTIONS (2)
  - PNEUMONIA [None]
  - RESPIRATORY FAILURE [None]
